FAERS Safety Report 8813965 (Version 2)
Quarter: 2012Q4

REPORT INFORMATION
  Report Type: 
  Country: US (occurrence: US)
  Receive Date: 20120928
  Receipt Date: 20121109
  Transmission Date: 20130627
  Serious: Yes (Hospitalization, Disabling, Other)
  Sender: FDA-Public Use
  Company Number: US-009507513-1209USA011166

PATIENT
  Age: 61 Year
  Sex: Female
  Weight: 60.32 kg

DRUGS (2)
  1. JANUMET [Suspect]
     Indication: DIABETES MELLITUS
     Dosage: 100/1000, qd
     Route: 048
     Dates: start: 20080520, end: 20120910
  2. LISINOPRIL [Concomitant]
     Indication: HYPERTENSION
     Dosage: UNK
     Route: 048

REACTIONS (6)
  - Pancreatitis acute [Recovered/Resolved]
  - Ileus [Unknown]
  - Hypertension [Unknown]
  - Blood potassium decreased [Unknown]
  - Depression [Unknown]
  - Leukocytosis [Unknown]
